FAERS Safety Report 22260871 (Version 1)
Quarter: 2023Q2

REPORT INFORMATION
  Report Type: Spontaneous
  Country: PT (occurrence: PT)
  Receive Date: 20230427
  Receipt Date: 20230427
  Transmission Date: 20230722
  Serious: Yes (Other)
  Sender: FDA-Public Use
  Company Number: PT-Gedeon Richter Plc.-2023_GR_003644

PATIENT
  Sex: Female

DRUGS (1)
  1. LEVONORGESTREL [Suspect]
     Active Substance: LEVONORGESTREL
     Indication: Product used for unknown indication
     Dosage: 52 MG, SINGLE
     Route: 015

REACTIONS (5)
  - Pregnancy with contraceptive device [Unknown]
  - Drug ineffective [Unknown]
  - Cytomegalovirus test positive [Unknown]
  - Hypertension [Unknown]
  - Device expulsion [Unknown]
